FAERS Safety Report 5252448-3 (Version None)
Quarter: 2007Q1

REPORT INFORMATION
  Report Type: 
  Country: None (occurrence: None)
  Receive Date: 20070301
  Receipt Date: 20061114
  Transmission Date: 20070707
  Serious: Yes (Death)
  Sender: FDA-Public Use
  Company Number: US-BRISTOL-MYERS SQUIBB COMPANY-13578786

PATIENT
  Age: 8 Decade
  Sex: Female

DRUGS (1)
  1. ERBITUX [Suspect]
     Indication: COLORECTAL CANCER METASTATIC
     Dates: start: 20061101

REACTIONS (4)
  - ANXIETY [None]
  - CHILLS [None]
  - CIRCULATORY COLLAPSE [None]
  - DEATH [None]
